FAERS Safety Report 9680076 (Version 1)
Quarter: 2013Q4

REPORT INFORMATION
  Report Type: Report from Study
  Country: CA (occurrence: CA)
  Receive Date: 20131111
  Receipt Date: 20131111
  Transmission Date: 20140711
  Serious: Yes (Other)
  Sender: FDA-Public Use
  Company Number: CA-ROCHE-1299973

PATIENT
  Age: 65 Year
  Sex: 0

DRUGS (1)
  1. RITUXAN [Suspect]
     Indication: B-CELL LYMPHOMA
     Route: 065
     Dates: start: 20130123

REACTIONS (2)
  - Renal failure [Unknown]
  - Thrombotic microangiopathy [Unknown]
